FAERS Safety Report 6652770-X (Version None)
Quarter: 2010Q1

REPORT INFORMATION
  Report Type: 
  Country: None (occurrence: None)
  Receive Date: 20100326
  Receipt Date: 20100314
  Transmission Date: 20100710
  Serious: Yes (Other)
  Sender: FDA-Public Use
  Company Number: IT-RANBAXY-2010RR-32494

PATIENT
  Sex: Female

DRUGS (1)
  1. ACETAMINOPHEN [Suspect]
     Dosage: UNK

REACTIONS (2)
  - ANGIOEDEMA [None]
  - URTICARIA [None]
